FAERS Safety Report 6455996-3 (Version None)
Quarter: 2009Q4

REPORT INFORMATION
  Report Type: 
  Country: None (occurrence: None)
  Receive Date: 20091119
  Receipt Date: 20091111
  Transmission Date: 20100525
  Serious: Yes (Other)
  Sender: FDA-Public Use
  Company Number: 2009SP035836

PATIENT
  Age: 79 Year
  Sex: Male

DRUGS (10)
  1. MIRTAZAPINE [Suspect]
     Indication: DEPRESSION
     Dosage: 15 MG;HS;PO
     Route: 048
     Dates: start: 20091002, end: 20091004
  2. ASPIRIN [Concomitant]
  3. FELODIPINE [Concomitant]
  4. ISOSORBIDE MONONITRATE [Concomitant]
  5. PARACETAMOL [Concomitant]
  6. PRAVASTATIN SODIUM [Concomitant]
  7. QUININE [Concomitant]
  8. TEMAZEPAM [Concomitant]
  9. TRAZODONE HYDROCHLORIDE [Concomitant]
  10. VITAMIN B COMPLEX CAP [Concomitant]

REACTIONS (5)
  - ANXIETY [None]
  - DEPERSONALISATION [None]
  - RESTLESSNESS [None]
  - SUICIDAL IDEATION [None]
  - VIOLENCE-RELATED SYMPTOM [None]
